FAERS Safety Report 14812605 (Version 1)
Quarter: 2018Q2

REPORT INFORMATION
  Report Type: Spontaneous
  Country: CN (occurrence: CN)
  Receive Date: 20180425
  Receipt Date: 20180425
  Transmission Date: 20180711
  Serious: Yes (Hospitalization, Other)
  Sender: FDA-Public Use
  Company Number: CN-BAXTER-2018BAX011450

PATIENT
  Sex: Male

DRUGS (1)
  1. DIANEAL [Suspect]
     Active Substance: CALCIUM CHLORIDE\DEXTROSE\MAGNESIUM CHLORIDE\SODIUM CHLORIDE\SODIUM LACTATE
     Indication: CONGENITAL CYSTIC KIDNEY DISEASE
     Route: 033
     Dates: start: 2018

REACTIONS (2)
  - Renal cyst ruptured [Not Recovered/Not Resolved]
  - Peritonitis [Unknown]
